FAERS Safety Report 26198886 (Version 1)
Quarter: 2025Q4

REPORT INFORMATION
  Report Type: Spontaneous
  Country: US (occurrence: US)
  Receive Date: 20251225
  Receipt Date: 20251225
  Transmission Date: 20260118
  Serious: No
  Sender: ACCORD
  Company Number: US-Accord-484292

PATIENT
  Age: 75 Year
  Sex: Female
  Weight: 72.12 kg

DRUGS (1)
  1. BUPROPION HYDROCHLORIDE [Suspect]
     Active Substance: BUPROPION HYDROCHLORIDE
     Indication: Anxiety
     Dosage: EXTENDED-RELEASE TABLET, DAILY, STRENGTH: 150MG, AROUND 01-APR-2025
     Route: 048
     Dates: start: 202504

REACTIONS (4)
  - Cough [Unknown]
  - Product odour abnormal [Unknown]
  - Poor quality product administered [Unknown]
  - Off label use [Unknown]

NARRATIVE: CASE EVENT DATE: 20250401
